FAERS Safety Report 23365676 (Version 4)
Quarter: 2024Q1

REPORT INFORMATION
  Report Type: Spontaneous
  Country: US (occurrence: US)
  Receive Date: 20240104
  Receipt Date: 20240109
  Transmission Date: 20240410
  Serious: No
  Sender: FDA-Public Use
  Company Number: US-ABBVIE-5570810

PATIENT
  Age: 48 Year
  Sex: Female

DRUGS (2)
  1. VUITY [Suspect]
     Active Substance: PILOCARPINE HYDROCHLORIDE
     Indication: Presbyopia
     Dosage: FORM STRENGTH: 1.25 PERCENT, FREQUENCY- ONE DROP INTO BOTH EYES EVERY MORNING
     Route: 050
  2. VUITY [Suspect]
     Active Substance: PILOCARPINE HYDROCHLORIDE
     Dosage: FORM STRENGTH: 1.25 PERCENT/?ONE DROP IN BOTH EYES EVERY MORNING
     Route: 050
     Dates: start: 2023

REACTIONS (2)
  - Headache [Recovered/Resolved]
  - Vision blurred [Recovered/Resolved]

NARRATIVE: CASE EVENT DATE: 20230101
